FAERS Safety Report 18463600 (Version 1)
Quarter: 2020Q4

REPORT INFORMATION
  Report Type: Spontaneous
  Country: US (occurrence: US)
  Receive Date: 20201104
  Receipt Date: 20201104
  Transmission Date: 20210114
  Serious: Yes (Hospitalization)
  Sender: FDA-Public Use
  Company Number: US-ELI_LILLY_AND_COMPANY-US202010010683

PATIENT
  Sex: Female

DRUGS (2)
  1. HUMALOG [Suspect]
     Active Substance: INSULIN LISPRO
     Indication: PRODUCT USED FOR UNKNOWN INDICATION
     Dosage: UNK UNK, UNKNOWN
     Route: 065
  2. PREDNISONE. [Concomitant]
     Active Substance: PREDNISONE
     Indication: PRODUCT USED FOR UNKNOWN INDICATION

REACTIONS (8)
  - Early satiety [Unknown]
  - Blood potassium increased [Recovering/Resolving]
  - Gastric haemorrhage [Recovering/Resolving]
  - Full blood count decreased [Recovering/Resolving]
  - Gastrointestinal injury [Recovering/Resolving]
  - Blood glucose decreased [Recovering/Resolving]
  - Chest pain [Recovering/Resolving]
  - Pain [Not Recovered/Not Resolved]
